FAERS Safety Report 10609412 (Version 4)
Quarter: 2020Q2

REPORT INFORMATION
  Report Type: Spontaneous
  Country: CA (occurrence: CA)
  Receive Date: 20141126
  Receipt Date: 20200508
  Transmission Date: 20200713
  Serious: Yes (Hospitalization)
  Sender: FDA-Public Use
  Company Number: CA-ROCHE-1492813

PATIENT
  Age: 65 Year
  Sex: Female
  Weight: 68 kg

DRUGS (16)
  1. RITUXAN [Suspect]
     Active Substance: RITUXIMAB
     Route: 042
  2. NEUPOGEN [Suspect]
     Active Substance: FILGRASTIM
     Indication: PRODUCT USED FOR UNKNOWN INDICATION
     Dosage: THERAPY DURATION: 11 MONTHS
     Route: 042
  3. ERGOCALCIFEROL. [Concomitant]
     Active Substance: ERGOCALCIFEROL
  4. BENADRYL [Concomitant]
     Active Substance: DIPHENHYDRAMINE HYDROCHLORIDE
  5. RITUXAN [Suspect]
     Active Substance: RITUXIMAB
     Dosage: THERAPY DURATION: 6 MONTHS
     Route: 042
  6. NEUPOGEN [Suspect]
     Active Substance: FILGRASTIM
     Dosage: THERAPY DURATION: 11 MONTHS
     Route: 042
  7. NEULASTA [Suspect]
     Active Substance: PEGFILGRASTIM
     Indication: PRODUCT USED FOR UNKNOWN INDICATION
     Route: 058
  8. FLUDARABINE [Suspect]
     Active Substance: FLUDARABINE PHOSPHATE
     Indication: PRODUCT USED FOR UNKNOWN INDICATION
     Dosage: THERAPY DURATION: 11 MONTHS
     Route: 065
  9. DOXORUBICIN [Suspect]
     Active Substance: DOXORUBICIN
     Indication: PRODUCT USED FOR UNKNOWN INDICATION
     Route: 042
  10. PROCHLORPERAZINE. [Concomitant]
     Active Substance: PROCHLORPERAZINE
  11. VINCRISTINE [Suspect]
     Active Substance: VINCRISTINE
     Indication: PRODUCT USED FOR UNKNOWN INDICATION
     Route: 042
  12. FISH OIL [Concomitant]
     Active Substance: FISH OIL
  13. RITUXAN [Suspect]
     Active Substance: RITUXIMAB
     Indication: PRODUCT USED FOR UNKNOWN INDICATION
     Route: 041
  14. RITUXAN [Suspect]
     Active Substance: RITUXIMAB
     Dosage: THERAPY DURATION: 4 MONTHS
     Route: 042
  15. CYCLOPHOSPHAMID [Suspect]
     Active Substance: CYCLOPHOSPHAMIDE
     Indication: PRODUCT USED FOR UNKNOWN INDICATION
     Route: 042
  16. PREDNISONE. [Suspect]
     Active Substance: PREDNISONE
     Indication: PRODUCT USED FOR UNKNOWN INDICATION
     Route: 048

REACTIONS (22)
  - Fatigue [Unknown]
  - Febrile neutropenia [Unknown]
  - Hypotension [Unknown]
  - Productive cough [Unknown]
  - Arthralgia [Unknown]
  - Asthenia [Unknown]
  - Lymph node pain [Unknown]
  - Malaise [Unknown]
  - Thrombosis [Unknown]
  - Weight decreased [Unknown]
  - Lymphadenopathy [Unknown]
  - Nausea [Unknown]
  - Pyrexia [Unknown]
  - Blood magnesium decreased [Unknown]
  - Disease progression [Unknown]
  - Heart rate abnormal [Unknown]
  - White blood cell count decreased [Unknown]
  - Clostridium difficile infection [Unknown]
  - Lymphadenitis [Unknown]
  - Platelet count decreased [Unknown]
  - Infection [Unknown]
  - Muscle twitching [Unknown]
